FAERS Safety Report 7327476-4 (Version None)
Quarter: 2011Q1

REPORT INFORMATION
  Report Type: 
  Country: None (occurrence: None)
  Receive Date: 20110303
  Receipt Date: 20110221
  Transmission Date: 20110831
  Serious: Yes (Hospitalization)
  Sender: FDA-Public Use
  Company Number: US-BIOGENIDEC-2010BI040461

PATIENT
  Age: 55 Year
  Sex: Female
  Weight: 99 kg

DRUGS (20)
  1. FLEXOR PAIN PATCH [Concomitant]
  2. VITAMIN B-12 [Concomitant]
  3. DRAMAMINE [Concomitant]
  4. SEREVENT [Concomitant]
  5. CORRECTOL [Concomitant]
  6. NAPROSYN [Concomitant]
  7. HYZAAR [Concomitant]
  8. SCOPOLAMINE [Concomitant]
  9. MOTRIN [Concomitant]
  10. MUCINEX [Concomitant]
  11. VITAMIN D [Concomitant]
  12. DETROL LA [Concomitant]
  13. CLARITIN [Concomitant]
  14. TYSABRI [Suspect]
     Indication: MULTIPLE SCLEROSIS
     Route: 042
     Dates: start: 20101026, end: 20101026
  15. PROTONIX [Concomitant]
  16. AMBIEN [Concomitant]
  17. VIVELLE [Concomitant]
  18. LASIX [Concomitant]
  19. DARVOCET [Concomitant]
  20. PEPTO-BISMOL [Concomitant]

REACTIONS (6)
  - MULTIPLE SCLEROSIS RELAPSE [None]
  - POOR VENOUS ACCESS [None]
  - POST HERPETIC NEURALGIA [None]
  - INTESTINAL OBSTRUCTION [None]
  - HERPES ZOSTER [None]
  - DYSURIA [None]
